FAERS Safety Report 6638572-9 (Version None)
Quarter: 2010Q1

REPORT INFORMATION
  Report Type: 
  Country: None (occurrence: None)
  Receive Date: 20100317
  Receipt Date: 20100309
  Transmission Date: 20100710
  Serious: Yes (Hospitalization)
  Sender: FDA-Public Use
  Company Number: FR-SANOFI-AVENTIS-2010SA013154

PATIENT
  Age: 74 Year
  Sex: Male

DRUGS (13)
  1. LANTUS [Suspect]
     Indication: TYPE 2 DIABETES MELLITUS
     Route: 058
     Dates: start: 20100201, end: 20100219
  2. AMOXICILLIN AND CLAVULANATE POTASSIUM [Suspect]
     Indication: BRONCHITIS
     Route: 048
     Dates: start: 20100105, end: 20100113
  3. AMOXICILLIN AND CLAVULANATE POTASSIUM [Suspect]
     Route: 048
     Dates: start: 20100114, end: 20100210
  4. TAHOR [Suspect]
     Route: 048
     Dates: start: 20090922, end: 20100218
  5. PLAVIX [Concomitant]
     Route: 048
     Dates: start: 20090922
  6. LASILIX FAIBLE [Concomitant]
     Dosage: 60MG-40MG-20MG
     Route: 048
  7. DIFFU K [Concomitant]
     Route: 048
  8. NITRODERM [Concomitant]
     Route: 062
  9. SERETIDE DISKUS [Concomitant]
     Indication: BRONCHITIS
     Route: 045
     Dates: start: 20100105
  10. ATACAND [Concomitant]
     Route: 048
  11. NOVONORM [Concomitant]
     Indication: TYPE 2 DIABETES MELLITUS
     Route: 048
  12. LOXEN [Concomitant]
     Route: 048
     Dates: start: 20090922
  13. CARDENSIEL [Concomitant]
     Route: 048

REACTIONS (4)
  - BLOOD CREATINE PHOSPHOKINASE INCREASED [None]
  - MYALGIA [None]
  - MYOGLOBIN BLOOD INCREASED [None]
  - RHABDOMYOLYSIS [None]
